FAERS Safety Report 11643253 (Version 2)
Quarter: 2015Q4

REPORT INFORMATION
  Report Type: Spontaneous
  Country: US (occurrence: US)
  Receive Date: 20151020
  Receipt Date: 20151222
  Transmission Date: 20160304
  Serious: Yes (Hospitalization, Other)
  Sender: FDA-Public Use
  Company Number: US-BAYER-2015-446213

PATIENT
  Age: 31 Year
  Sex: Female
  Weight: 65.76 kg

DRUGS (1)
  1. MIRENA [Suspect]
     Active Substance: LEVONORGESTREL
     Indication: CONTRACEPTION
     Dosage: 20 MCG/24HR, CONT
     Route: 015
     Dates: start: 20050630, end: 20061222

REACTIONS (15)
  - Dyspareunia [None]
  - Device issue [None]
  - Abortion spontaneous [None]
  - Emotional distress [None]
  - Psychological trauma [None]
  - Menorrhagia [None]
  - Uterine perforation [Not Recovered/Not Resolved]
  - Pain [Not Recovered/Not Resolved]
  - Device difficult to use [None]
  - Device failure [None]
  - Stress [None]
  - Maternal exposure before pregnancy [None]
  - Abdominal pain [Not Recovered/Not Resolved]
  - Fear [None]
  - Injury [Not Recovered/Not Resolved]

NARRATIVE: CASE EVENT DATE: 200506
